FAERS Safety Report 6984618-8 (Version None)
Quarter: 2010Q3

REPORT INFORMATION
  Report Type: 
  Country: None (occurrence: None)
  Receive Date: 20100915
  Receipt Date: 20100903
  Transmission Date: 20110219
  Serious: Yes (Hospitalization)
  Sender: FDA-Public Use
  Company Number: FR-PFIZER INC-2010092283

PATIENT
  Age: 56 Year
  Sex: Female

DRUGS (8)
  1. LYRICA [Suspect]
     Indication: NEURALGIA
     Dosage: 50 MG, 1X/DAY
     Route: 048
     Dates: start: 20100531, end: 20100610
  2. LYRICA [Suspect]
  3. TEGRETOL [Suspect]
     Dosage: 200 MG, 1X/DAY
     Route: 048
     Dates: start: 20100610, end: 20100623
  4. RIVOTRIL [Suspect]
     Dosage: 2.5 MG, 1X/DAY
     Route: 048
     Dates: start: 20100610, end: 20100623
  5. LANSOPRAZOLE [Concomitant]
     Dosage: UNK
  6. EFFERALGAN [Concomitant]
     Dosage: UNK
  7. ART 50 [Concomitant]
     Dosage: UNK
  8. CHONDROSULF [Concomitant]
     Dosage: UNK

REACTIONS (1)
  - TOXIC SKIN ERUPTION [None]
